FAERS Safety Report 7984273-4 (Version None)
Quarter: 2011Q4

REPORT INFORMATION
  Report Type: 
  Country: None (occurrence: None)
  Receive Date: 20111214
  Receipt Date: 20111128
  Transmission Date: 20120403
  Serious: Yes (Other)
  Sender: FDA-Public Use
  Company Number: 1000026078

PATIENT
  Age: 78 Year
  Sex: Female

DRUGS (6)
  1. SINEMET [Suspect]
     Indication: PARKINSON'S DISEASE
     Dosage: 75/ 750 MG DAILY, ORAL
     Route: 048
  2. ENALAPRIL (ENALAPRIL)(TABLETS)(ENALAPRIL) [Concomitant]
  3. TROMALYT (ACETYLSALICYLIC ACID)(TABLETS)(ACETYLSALICYLIC ACID) [Concomitant]
  4. MEMANTINE HYDROCHLORIDE [Suspect]
     Indication: DEMENTIA WITH LEWY BODIES
     Dosage: 20 MG (10 MG,2 IN 1 D),ORAL
     Route: 048
     Dates: start: 20110501, end: 20110701
  5. OMEPRAZOLE (OMEPRAZOLE)(TABLETS)(OMEPRAZOLE) [Concomitant]
  6. METFORMIN (METFORMIN)(TABLETS)(METFORMIN) [Concomitant]

REACTIONS (4)
  - OFF LABEL USE [None]
  - DYSARTHRIA [None]
  - HEMIPARESIS [None]
  - SUICIDAL IDEATION [None]
